FAERS Safety Report 8903149 (Version 1)
Quarter: 2012Q4

REPORT INFORMATION
  Report Type: 
  Country: US (occurrence: US)
  Receive Date: 20121113
  Receipt Date: 20121113
  Transmission Date: 20130627
  Serious: Yes (Hospitalization)
  Sender: FDA-Public Use
  Company Number: US-PFIZER INC-2012281196

PATIENT
  Age: 61 Year
  Sex: Male

DRUGS (1)
  1. INLYTA [Suspect]
     Indication: METASTATIC RENAL CARCINOMA
     Dosage: 5 mg, twice a day
     Dates: start: 20120904

REACTIONS (1)
  - Localised infection [Unknown]
